FAERS Safety Report 16311480 (Version 1)
Quarter: 2019Q2

REPORT INFORMATION
  Report Type: Spontaneous
  Country: PT (occurrence: PT)
  Receive Date: 20190514
  Receipt Date: 20190514
  Transmission Date: 20190711
  Serious: Yes (Death)
  Sender: FDA-Public Use
  Company Number: PT-ALLERGAN-1920127US

PATIENT

DRUGS (1)
  1. URSODEOXYCHOLIC ACID UNK [Suspect]
     Active Substance: URSODIOL
     Indication: PRIMARY BILIARY CHOLANGITIS
     Dosage: 13 MG/KG, QD
     Route: 065

REACTIONS (1)
  - Cardiac failure [Fatal]
